FAERS Safety Report 7371990-2 (Version None)
Quarter: 2011Q1

REPORT INFORMATION
  Report Type: 
  Country: None (occurrence: None)
  Receive Date: 20110324
  Receipt Date: 20110310
  Transmission Date: 20110831
  Serious: Yes (Disabling, Other)
  Sender: FDA-Public Use
  Company Number: PHHY2011JP01467

PATIENT
  Age: 12 Year
  Sex: Female

DRUGS (4)
  1. PREDNISOLONE [Suspect]
     Indication: NEPHROTIC SYNDROME
     Dosage: UNK
     Route: 048
  2. NEORAL [Suspect]
     Indication: NEPHROTIC SYNDROME
     Dosage: UNK
     Route: 048
  3. METHYLPREDNISOLONE [Suspect]
     Indication: NEPHROTIC SYNDROME
     Dosage: UNK
  4. METHOTREXATE [Suspect]
     Indication: NEPHROTIC SYNDROME
     Dosage: UNK

REACTIONS (7)
  - CHORIORETINAL ATROPHY [None]
  - CHORIORETINAL DISORDER [None]
  - CHORIORETINITIS [None]
  - CATARACT SUBCAPSULAR [None]
  - VISUAL ACUITY REDUCED [None]
  - VITREOUS DISORDER [None]
  - PROPIONIBACTERIUM INFECTION [None]
